FAERS Safety Report 9465096 (Version 1)
Quarter: 2013Q3

REPORT INFORMATION
  Report Type: Spontaneous
  Country: US (occurrence: US)
  Receive Date: 20130819
  Receipt Date: 20130819
  Transmission Date: 20140515
  Serious: Yes (Hospitalization)
  Sender: FDA-Public Use
  Company Number: CHPA2013US012892

PATIENT
  Age: 60 Year
  Sex: Female

DRUGS (4)
  1. MAALOX ANTACID/ANTIGAS RS LIQ SMTHCHERRY [Suspect]
     Indication: DYSPEPSIA
     Dosage: UNK, UNK
     Route: 048
  2. MAALOX ANTACID/ANTIGAS RS LIQ SMTHCHERRY [Suspect]
     Indication: ABDOMINAL DISTENSION
  3. MAALOX ANTACID/ANTIGAS MAX QDTABS ASST [Suspect]
     Indication: DYSPEPSIA
     Dosage: 1-2 TABLETS, UNK
     Route: 048
  4. MAALOX ANTACID/ANTIGAS MAX QDTABS ASST [Suspect]
     Indication: ABDOMINAL DISTENSION

REACTIONS (8)
  - Cholecystitis infective [Recovered/Resolved]
  - Cholelithiasis [Recovered/Resolved]
  - Coeliac disease [Not Recovered/Not Resolved]
  - Lactose intolerance [Not Recovered/Not Resolved]
  - Gastric ulcer [Not Recovered/Not Resolved]
  - Malaise [Recovered/Resolved]
  - Dyspepsia [Recovering/Resolving]
  - Abdominal distension [Recovering/Resolving]
